FAERS Safety Report 9155623 (Version 1)
Quarter: 2013Q1

REPORT INFORMATION
  Report Type: Spontaneous
  Country: DE (occurrence: DE)
  Receive Date: 20130311
  Receipt Date: 20130311
  Transmission Date: 20140127
  Serious: Yes (Other)
  Sender: FDA-Public Use
  Company Number: DE-GLAXOSMITHKLINE-D0078961A

PATIENT
  Age: 85 None
  Sex: Female
  Weight: 66 kg

DRUGS (1)
  1. REVOLADE [Suspect]
     Indication: THROMBOCYTOPENIA
     Dosage: 75MG PER DAY
     Route: 048
     Dates: start: 20120510, end: 20130131

REACTIONS (4)
  - Drug-induced liver injury [Not Recovered/Not Resolved]
  - Hepatic cirrhosis [Not Recovered/Not Resolved]
  - Jaundice [Recovering/Resolving]
  - Transaminases increased [Unknown]
